FAERS Safety Report 9464654 (Version 2)
Quarter: 2013Q3

REPORT INFORMATION
  Report Type: Spontaneous
  Country: US (occurrence: US)
  Receive Date: 20130819
  Receipt Date: 20130917
  Transmission Date: 20140515
  Serious: No
  Sender: FDA-Public Use
  Company Number: US-PFIZER INC-2013237864

PATIENT
  Age: 74 Year
  Sex: Male

DRUGS (2)
  1. LIPITOR [Suspect]
     Indication: HYPERLIPIDAEMIA
     Dosage: 20 MG, DAILY
     Dates: start: 20130326, end: 201307
  2. ATORVASTATIN CALCIUM [Suspect]
     Dosage: 20 MG, UNK
     Dates: start: 20130603

REACTIONS (3)
  - Vision blurred [Recovering/Resolving]
  - Muscle spasms [Recovering/Resolving]
  - Burning sensation [Unknown]
